FAERS Safety Report 5593819-5 (Version None)
Quarter: 2008Q1

REPORT INFORMATION
  Report Type: 
  Country: None (occurrence: None)
  Receive Date: 20080116
  Receipt Date: 20071221
  Transmission Date: 20080703
  Serious: No
  Sender: FDA-Public Use
  Company Number: US-BOEHRINGER INGELHEIM PHARMACEUTICALS, INC.-2007-BP-26858BP

PATIENT
  Sex: Female

DRUGS (8)
  1. SPIRIVA [Suspect]
     Indication: CHRONIC OBSTRUCTIVE PULMONARY DISEASE
     Route: 055
     Dates: start: 20050101
  2. SPIRIVA [Suspect]
     Indication: EMPHYSEMA
  3. PULMICORT [Concomitant]
  4. PREDNISONE TAB [Concomitant]
  5. DARVOCET [Concomitant]
  6. FOSAMAX [Concomitant]
  7. THEO-2 [Concomitant]
  8. CO 24 [Concomitant]

REACTIONS (1)
  - VISION BLURRED [None]
